FAERS Safety Report 4513128-2 (Version None)
Quarter: 2004Q4

REPORT INFORMATION
  Report Type: 
  Country: None (occurrence: None)
  Receive Date: 20041130
  Receipt Date: 20041110
  Transmission Date: 20050328
  Serious: Yes (Other)
  Sender: FDA-Public Use
  Company Number: CA-BRISTOL-MYERS SQUIBB COMPANY-12764064

PATIENT
  Age: 96 Year
  Sex: Female

DRUGS (1)
  1. TEQUIN [Suspect]
     Indication: URINARY TRACT INFECTION
     Dosage: ONCE DAILY
     Route: 048
     Dates: start: 20041105, end: 20041108

REACTIONS (1)
  - HYPERGLYCAEMIA [None]
